FAERS Safety Report 7561020-1 (Version None)
Quarter: 2011Q2

REPORT INFORMATION
  Report Type: 
  Country: None (occurrence: None)
  Receive Date: 20110621
  Receipt Date: 20100517
  Transmission Date: 20111010
  Serious: No
  Sender: FDA-Public Use
  Company Number: US-ASTRAZENECA-2010SE22507

PATIENT
  Sex: Female

DRUGS (1)
  1. ATACAND HCT [Suspect]
     Dosage: TOTAL DAILY DOSE 8 MGS
     Route: 048

REACTIONS (9)
  - NERVE COMPRESSION [None]
  - DIABETES MELLITUS [None]
  - ASTHMA [None]
  - LIGAMENT RUPTURE [None]
  - LUNG NEOPLASM [None]
  - MUSCULOSKELETAL PAIN [None]
  - ANAEMIA [None]
  - DYSPHONIA [None]
  - ARTHRITIS [None]
